FAERS Safety Report 9918900 (Version 2)
Quarter: 2014Q2

REPORT INFORMATION
  Report Type: Spontaneous
  Country: US (occurrence: US)
  Receive Date: 20140224
  Receipt Date: 20140620
  Transmission Date: 20141212
  Serious: Yes (Other)
  Sender: FDA-Public Use
  Company Number: US-PFIZER INC-2014050901

PATIENT
  Age: 60 Year
  Sex: Female
  Weight: 88.44 kg

DRUGS (3)
  1. TIKOSYN [Suspect]
     Indication: ATRIAL FIBRILLATION
     Dosage: 250 UG, 2X/DAY (250MCG Q12)
     Route: 048
     Dates: start: 20140102, end: 20140120
  2. ENALAPRIL [Concomitant]
     Indication: BLOOD PRESSURE ABNORMAL
     Dosage: UNK
  3. WARFARIN [Concomitant]
     Dosage: UNK

REACTIONS (2)
  - Ventricular tachycardia [Unknown]
  - Ventricular extrasystoles [Unknown]
